FAERS Safety Report 5441953-2 (Version None)
Quarter: 2007Q3

REPORT INFORMATION
  Report Type: 
  Country: None (occurrence: None)
  Receive Date: 20070904
  Receipt Date: 20070830
  Transmission Date: 20080115
  Serious: Yes (Hospitalization)
  Sender: FDA-Public Use
  Company Number: A0677857A

PATIENT
  Age: 2 Year
  Sex: Female

DRUGS (1)
  1. AEROLIN [Suspect]
     Indication: DRUG USE FOR UNKNOWN INDICATION
     Dosage: 30ML SINGLE DOSE
     Route: 055
     Dates: start: 20070825, end: 20070825

REACTIONS (3)
  - ACCIDENTAL OVERDOSE [None]
  - TACHYCARDIA [None]
  - TREMOR [None]
